FAERS Safety Report 25595075 (Version 3)
Quarter: 2025Q4

REPORT INFORMATION
  Report Type: Report from Study
  Country: US (occurrence: US)
  Receive Date: 20250723
  Receipt Date: 20251231
  Transmission Date: 20260119
  Serious: Yes (Hospitalization)
  Sender: ROCHE
  Company Number: US-ROCHE-10000340813

PATIENT
  Age: 66 Year
  Sex: Male

DRUGS (2)
  1. HEMLIBRA [Suspect]
     Active Substance: EMICIZUMAB-KXWH
     Indication: Factor VIII deficiency
     Dosage: INJECT 0.91ML (137.1MG) SUBCUTANEOUSLY EVERY 14 DAY(S)
     Route: 058
  2. HEMLIBRA [Suspect]
     Active Substance: EMICIZUMAB-KXWH
     Indication: Acquired haemophilia

REACTIONS (2)
  - Knee arthroplasty [Unknown]
  - Knee operation [Unknown]

NARRATIVE: CASE EVENT DATE: 20251107
